FAERS Safety Report 4824259-1 (Version None)
Quarter: 2005Q4

REPORT INFORMATION
  Report Type: 
  Country: None (occurrence: None)
  Receive Date: 20051109
  Receipt Date: 20050831
  Transmission Date: 20060501
  Serious: Yes (Other)
  Sender: FDA-Public Use
  Company Number: PHEH2005US09762

PATIENT
  Age: 54 Year
  Sex: Female

DRUGS (1)
  1. ZOMETA [Suspect]
     Indication: METASTASES TO BONE
     Dosage: 4 MG EVERY 4 WEEKS
     Dates: start: 20030903, end: 20050804

REACTIONS (11)
  - BONE DISORDER [None]
  - BONE LESION [None]
  - BONE OPERATION [None]
  - BONE TRIMMING [None]
  - ENANTHEMA [None]
  - GINGIVAL SWELLING [None]
  - GINGIVAL ULCERATION [None]
  - IMPAIRED HEALING [None]
  - OSTEONECROSIS [None]
  - TOOTH DISORDER [None]
  - TOOTH EXTRACTION [None]
